FAERS Safety Report 9515055 (Version 1)
Quarter: 2013Q3

REPORT INFORMATION
  Report Type: Spontaneous
  Country: GB (occurrence: GB)
  Receive Date: 20130911
  Receipt Date: 20130911
  Transmission Date: 20140515
  Serious: Yes (Disabling, Other)
  Sender: FDA-Public Use
  Company Number: GB-JNJFOC-20130900476

PATIENT
  Age: 14 Year
  Sex: Female
  Weight: 86.07 kg

DRUGS (2)
  1. RISPERDAL [Suspect]
     Indication: ANXIETY
     Route: 048
     Dates: start: 20070405, end: 20120206
  2. CELEXA [Concomitant]
     Indication: PRODUCT USED FOR UNKNOWN INDICATION
     Route: 065

REACTIONS (4)
  - Amenorrhoea [Unknown]
  - Blood prolactin increased [Not Recovered/Not Resolved]
  - Weight increased [Not Recovered/Not Resolved]
  - Prescribed overdose [Unknown]
